FAERS Safety Report 21558218 (Version 1)
Quarter: 2022Q4

REPORT INFORMATION
  Report Type: Other
  Country: CA (occurrence: CA)
  Receive Date: 20221107
  Receipt Date: 20221107
  Transmission Date: 20230113
  Serious: Yes (Other)
  Sender: FDA-Public Use
  Company Number: CA-CELLTRION INC.-2022CA018462

PATIENT

DRUGS (9)
  1. RITUXIMAB [Suspect]
     Active Substance: RITUXIMAB
     Indication: Rheumatoid arthritis
     Dosage: 1000 MG, 1 EVERY 2 WEEKS
     Route: 042
  2. ACETAMINOPHEN [Concomitant]
     Active Substance: ACETAMINOPHEN
     Indication: Premedication
     Dosage: 650 MG
     Route: 048
  3. CELEBREX [Concomitant]
     Active Substance: CELECOXIB
  4. DETROL [Concomitant]
     Active Substance: TOLTERODINE TARTRATE
  5. DIPHENHYDRAMINE [Concomitant]
     Active Substance: DIPHENHYDRAMINE
     Indication: Premedication
     Dosage: 50 MG
     Route: 048
  6. METHYLPREDNISOLONE [Concomitant]
     Active Substance: METHYLPREDNISOLONE
     Indication: Premedication
     Dosage: 100 MG
     Route: 042
  7. PREDNISONE [Concomitant]
     Active Substance: PREDNISONE
  8. REBIF [Concomitant]
     Active Substance: INTERFERON BETA-1A
     Dosage: PRE FILLED SRINGE, SUBCUTANEOUS SOLUTION
  9. VALSARTAN [Concomitant]
     Active Substance: VALSARTAN

REACTIONS (2)
  - Hepatic steatosis [Not Recovered/Not Resolved]
  - Weight increased [Not Recovered/Not Resolved]
